FAERS Safety Report 4650331-5 (Version None)
Quarter: 2005Q2

REPORT INFORMATION
  Report Type: 
  Country: None (occurrence: None)
  Receive Date: 20050428
  Receipt Date: 20050414
  Transmission Date: 20051028
  Serious: Yes (Other)
  Sender: FDA-Public Use
  Company Number: 2005005838

PATIENT
  Age: 81 Year
  Sex: Female
  Weight: 82.1011 kg

DRUGS (3)
  1. CELEBREX [Suspect]
     Indication: SPINAL COLUMN STENOSIS
     Dosage: 400 MG (200 MG, 2 IN 1 D), ORAL
     Route: 048
     Dates: start: 20030101, end: 20040101
  2. BEXTRA [Suspect]
     Indication: SPINAL COLUMN STENOSIS
     Dosage: 20 MG (10 MG, 2IN 1 D), ORAL
     Route: 048
     Dates: start: 20040101
  3. ALL OTHER THERAPEUTIC PRODUCTS (ALL OTHER THERAPEUTICS PRODUCTS) [Concomitant]

REACTIONS (5)
  - DIARRHOEA [None]
  - INTESTINAL HAEMORRHAGE [None]
  - NAUSEA [None]
  - RENAL CELL CARCINOMA STAGE UNSPECIFIED [None]
  - TREMOR [None]
